FAERS Safety Report 5990360-2 (Version None)
Quarter: 2008Q4

REPORT INFORMATION
  Report Type: 
  Country: None (occurrence: None)
  Receive Date: 20081209
  Receipt Date: 20081128
  Transmission Date: 20090506
  Serious: Yes (Disabling)
  Sender: FDA-Public Use
  Company Number: GXKR2008GB11371

PATIENT
  Age: 50 Year
  Sex: Male
  Weight: 70 kg

DRUGS (9)
  1. SIMVASTATIN [Suspect]
     Indication: DIABETES MELLITUS
     Dosage: 20 MG, ORAL 40 MG, ORAL
     Route: 048
     Dates: start: 20080101, end: 20080101
  2. SIMVASTATIN [Suspect]
     Indication: HYPERLIPIDAEMIA
     Dosage: 20 MG, ORAL 40 MG, ORAL
     Route: 048
     Dates: start: 20080101, end: 20080101
  3. SIMVASTATIN [Suspect]
     Indication: DIABETES MELLITUS
     Dosage: 20 MG, ORAL 40 MG, ORAL
     Route: 048
     Dates: end: 20080101
  4. SIMVASTATIN [Suspect]
     Indication: HYPERLIPIDAEMIA
     Dosage: 20 MG, ORAL 40 MG, ORAL
     Route: 048
     Dates: end: 20080101
  5. ACETYLSALICYLIC ACID SRT [Concomitant]
  6. GLIMEPIRIDE [Concomitant]
  7. METFORMIN (MERFORMIN) [Concomitant]
  8. NOVORAPID (INSULIN ASPART) [Concomitant]
  9. LEVEMIR [Concomitant]

REACTIONS (1)
  - PANIC ATTACK [None]
